FAERS Safety Report 8251522-7 (Version None)
Quarter: 2012Q1

REPORT INFORMATION
  Report Type: 
  Country: None (occurrence: None)
  Receive Date: 20120328
  Receipt Date: 20120320
  Transmission Date: 20120608
  Serious: Yes (Hospitalization)
  Sender: FDA-Public Use
  Company Number: TPA2012A01147

PATIENT
  Sex: Female
  Weight: 84.8226 kg

DRUGS (3)
  1. ACTOS [Suspect]
     Indication: DIABETES MELLITUS
     Dosage: 30 MG, 1 IN 1 D
  2. METFORMIN HCL [Suspect]
  3. GLYBURIDE [Suspect]

REACTIONS (3)
  - ABDOMINAL DISTENSION [None]
  - HUNGER [None]
  - WEIGHT INCREASED [None]
